FAERS Safety Report 23266815 (Version 1)
Quarter: 2023Q4

REPORT INFORMATION
  Report Type: Report from Study
  Country: CO (occurrence: None)
  Receive Date: 20231206
  Receipt Date: 20231206
  Transmission Date: 20240110
  Serious: Yes (Other)
  Sender: FDA-Public Use
  Company Number: 2023A273969

PATIENT
  Age: 67 Year
  Sex: Male
  Weight: 53 kg

DRUGS (1)
  1. LYNPARZA [Suspect]
     Active Substance: OLAPARIB
     Indication: Prostate infection
     Route: 048
     Dates: start: 20231015, end: 20231123

REACTIONS (5)
  - Gait disturbance [Recovering/Resolving]
  - Vomiting [Recovering/Resolving]
  - Dizziness [Unknown]
  - Decreased appetite [Recovering/Resolving]
  - Drug intolerance [Recovering/Resolving]

NARRATIVE: CASE EVENT DATE: 20231015
